FAERS Safety Report 11023381 (Version 2)
Quarter: 2015Q2

REPORT INFORMATION
  Report Type: Spontaneous
  Country: US (occurrence: US)
  Receive Date: 20150413
  Receipt Date: 20150529
  Transmission Date: 20150821
  Serious: No
  Sender: FDA-Public Use
  Company Number: US-PFIZER INC-2015122171

PATIENT
  Age: 47 Year
  Sex: Male
  Weight: 136 kg

DRUGS (5)
  1. WARFARIN [Interacting]
     Active Substance: WARFARIN
     Dosage: UNK
  2. LYRICA [Suspect]
     Active Substance: PREGABALIN
     Dosage: UNK
     Dates: start: 20150227
  3. XARELTO [Interacting]
     Active Substance: RIVAROXABAN
     Dosage: UNK
  4. OXYCODONE [Concomitant]
     Active Substance: OXYCODONE
     Indication: PAIN
     Dosage: 15 MG, EVERY 4 HRS
     Route: 048
  5. DILANTIN [Interacting]
     Active Substance: PHENYTOIN
     Dosage: UNK

REACTIONS (3)
  - Communication disorder [Not Recovered/Not Resolved]
  - Amnesia [Not Recovered/Not Resolved]
  - Drug interaction [Not Recovered/Not Resolved]

NARRATIVE: CASE EVENT DATE: 201503
